FAERS Safety Report 16331858 (Version 1)
Quarter: 2019Q2

REPORT INFORMATION
  Report Type: Spontaneous
  Country: DZ (occurrence: DZ)
  Receive Date: 20190520
  Receipt Date: 20190520
  Transmission Date: 20190711
  Serious: Yes (Disabling)
  Sender: FDA-Public Use
  Company Number: DZ-SA-2019SA131727

PATIENT
  Age: 71 Year
  Sex: Female
  Weight: 61 kg

DRUGS (2)
  1. DOCETAXEL. [Suspect]
     Active Substance: DOCETAXEL
     Indication: BREAST CANCER
     Dosage: 75 MG/M2, UNK
     Route: 042
     Dates: start: 20190421, end: 20190421
  2. DOCETAXEL. [Suspect]
     Active Substance: DOCETAXEL
     Dosage: 75 MG/M2, UNK
     Route: 042

REACTIONS (5)
  - Neurotoxicity [Recovering/Resolving]
  - Nail disorder [Recovering/Resolving]
  - Pleural effusion [Recovering/Resolving]
  - Alopecia [Recovering/Resolving]
  - Eye pain [Recovering/Resolving]

NARRATIVE: CASE EVENT DATE: 20190510
